FAERS Safety Report 5681677-X (Version None)
Quarter: 2008Q1

REPORT INFORMATION
  Report Type: 
  Country: None (occurrence: None)
  Receive Date: 20080326
  Receipt Date: 20070228
  Transmission Date: 20080703
  Serious: No
  Sender: FDA-Public Use
  Company Number: US-BAYER-US-2007-007340

PATIENT
  Age: 28 Year
  Sex: Female
  Weight: 109 kg

DRUGS (5)
  1. MIRENA [Suspect]
     Indication: POLYCYSTIC OVARIES
     Route: 015
     Dates: start: 20070117
  2. COUMADIN [Concomitant]
  3. SIMVASTATIN [Concomitant]
  4. ZYRTEC [Concomitant]
  5. TOPAMAX [Concomitant]
     Indication: MIGRAINE
     Dates: end: 20070221

REACTIONS (2)
  - MENOMETRORRHAGIA [None]
  - OEDEMA PERIPHERAL [None]
